FAERS Safety Report 9109558 (Version 1)
Quarter: 2013Q1

REPORT INFORMATION
  Report Type: Spontaneous
  Country: US (occurrence: US)
  Receive Date: 20130222
  Receipt Date: 20130222
  Transmission Date: 20140127
  Serious: Yes (Other)
  Sender: FDA-Public Use
  Company Number: PHEH2012US021484

PATIENT
  Sex: Male
  Weight: 97.51 kg

DRUGS (7)
  1. TASIGNA [Suspect]
     Indication: CHRONIC MYELOID LEUKAEMIA
     Dosage: 150 MG, BID
     Route: 048
     Dates: start: 201001, end: 20121003
  2. LISINOPRIL [Concomitant]
     Dosage: 5 MG, BID
  3. COREG [Concomitant]
     Dosage: 3.125 MG, BID
  4. ZOLOFT [Concomitant]
     Dosage: 100 MG
  5. RITALIN SR [Concomitant]
     Dosage: 30 MG, UNK
  6. ASPIRIN [Concomitant]
     Dosage: 81 MG, QD
  7. CARDURA [Concomitant]
     Dosage: 84 MG, QD

REACTIONS (7)
  - Rash pustular [Recovered/Resolved]
  - Rash generalised [Recovered/Resolved]
  - Blister [Recovered/Resolved]
  - Photosensitivity reaction [Recovered/Resolved]
  - Skin swelling [Recovered/Resolved]
  - Skin fissures [Recovered/Resolved]
  - Erythema [Recovered/Resolved]
